FAERS Safety Report 22896647 (Version 8)
Quarter: 2023Q4

REPORT INFORMATION
  Report Type: Report from Study
  Country: ES (occurrence: ES)
  Receive Date: 20230901
  Receipt Date: 20231020
  Transmission Date: 20240109
  Serious: Yes (Death, Life-Threatening, Hospitalization, Other)
  Sender: FDA-Public Use
  Company Number: ES-GENMAB-2023-01518

PATIENT
  Age: 81 Year
  Sex: Female
  Weight: 76.8 kg

DRUGS (62)
  1. EPCORITAMAB [Suspect]
     Active Substance: EPCORITAMAB
     Indication: Diffuse large B-cell lymphoma stage II
     Dosage: C1D1
     Route: 058
     Dates: start: 20230814, end: 20230814
  2. EPCORITAMAB [Suspect]
     Active Substance: EPCORITAMAB
     Dosage: C1D8
     Route: 058
     Dates: start: 20230821, end: 20230821
  3. EPCORITAMAB [Suspect]
     Active Substance: EPCORITAMAB
     Dosage: C1D15
     Route: 058
     Dates: start: 20230828, end: 20230828
  4. LENALIDOMIDE [Suspect]
     Active Substance: LENALIDOMIDE
     Indication: Diffuse large B-cell lymphoma stage II
     Dosage: CYCLE 1
     Route: 048
     Dates: start: 20230814, end: 20230903
  5. POLARAMINE [Concomitant]
     Active Substance: DEXCHLORPHENIRAMINE MALEATE
     Indication: Premedication
     Dosage: 10 MILLIGRAM, QD
     Route: 042
     Dates: start: 20230814, end: 20230814
  6. POLARAMINE [Concomitant]
     Active Substance: DEXCHLORPHENIRAMINE MALEATE
     Dosage: 10 MILLIGRAM, QD
     Route: 042
     Dates: start: 20230821, end: 20230821
  7. POLARAMINE [Concomitant]
     Active Substance: DEXCHLORPHENIRAMINE MALEATE
     Dosage: 10 MILLIGRAM, QD
     Route: 042
     Dates: start: 20230828, end: 20230828
  8. ACETAMINOPHEN [Concomitant]
     Active Substance: ACETAMINOPHEN
     Indication: Premedication
     Dosage: 1 GRAM, SINGLE
     Route: 048
     Dates: start: 20230814, end: 20230814
  9. ACETAMINOPHEN [Concomitant]
     Active Substance: ACETAMINOPHEN
     Dosage: 1 GRAM, SINGLE
     Route: 042
     Dates: start: 20230821, end: 20230821
  10. ACETAMINOPHEN [Concomitant]
     Active Substance: ACETAMINOPHEN
     Dosage: 1 GRAM, QD
     Route: 048
     Dates: start: 20230828, end: 20230828
  11. PREDNISONE [Concomitant]
     Active Substance: PREDNISONE
     Indication: Prophylaxis
     Dosage: 100 MILLIGRAM, QD
     Route: 048
     Dates: start: 20230814, end: 20230817
  12. PREDNISONE [Concomitant]
     Active Substance: PREDNISONE
     Dosage: 100 MILLIGRAM, QD
     Route: 048
     Dates: start: 20230821, end: 20230824
  13. PREDNISONE [Concomitant]
     Active Substance: PREDNISONE
     Dosage: 100 MILLIGRAM, QD
     Route: 048
     Dates: start: 20230828, end: 20230831
  14. PREDNISONE [Concomitant]
     Active Substance: PREDNISONE
     Indication: Diffuse large B-cell lymphoma stage II
     Dosage: 20 MILLIGRAM, QD
     Route: 048
     Dates: start: 20230804, end: 20230807
  15. PREDNISONE [Concomitant]
     Active Substance: PREDNISONE
     Dosage: 100 MILLIGRAM, QD
     Route: 048
     Dates: start: 20230808, end: 20230813
  16. ACETAMINOPHEN [Concomitant]
     Active Substance: ACETAMINOPHEN
     Indication: Prophylaxis
     Dosage: 1 GRAM, QD
     Route: 042
     Dates: start: 20230828, end: 20230829
  17. ASPIRIN [Concomitant]
     Active Substance: ASPIRIN
     Indication: Prophylaxis
     Dosage: 100 MILLIGRAM, QD
     Route: 048
     Dates: start: 2022, end: 20230904
  18. CEFTRIAXONE [Concomitant]
     Active Substance: CEFTRIAXONE\CEFTRIAXONE SODIUM
     Indication: Prophylaxis
     Dosage: 2 GRAM, SINGLE
     Route: 042
     Dates: start: 20230815, end: 20230815
  19. ESTOMIL [Concomitant]
     Dosage: 30 MILLIGRAM, QD
     Route: 048
     Dates: start: 2023
  20. DAPAGLIFLOZIN [Concomitant]
     Active Substance: DAPAGLIFLOZIN
     Dosage: 10 MILLIGRAM, QD
     Route: 048
     Dates: start: 2023
  21. SULFAMETHOXAZOLE\TRIMETHOPRIM [Concomitant]
     Active Substance: SULFAMETHOXAZOLE\TRIMETHOPRIM
     Indication: Prophylaxis
     Dosage: 160/800 MG, 2 TIMES PER WEEK (BIW)
     Route: 048
     Dates: start: 20230628
  22. TENORETIC [Concomitant]
     Active Substance: ATENOLOL\CHLORTHALIDONE
     Dosage: 100/25 MG, QD
     Route: 048
     Dates: start: 2023, end: 20230906
  23. TICAGRELOR [Concomitant]
     Active Substance: TICAGRELOR
     Indication: Prophylaxis
     Dosage: 90 MILLIGRAM, QD
     Route: 048
     Dates: start: 2022, end: 20230904
  24. AMITRIPTYLINE HYDROCHLORIDE [Concomitant]
     Active Substance: AMITRIPTYLINE HYDROCHLORIDE
     Dosage: 25 MILLIGRAM, QD
     Route: 048
     Dates: start: 2023
  25. ZALDIAR [Concomitant]
     Active Substance: ACETAMINOPHEN\TRAMADOL HYDROCHLORIDE
     Dosage: 37.5/325 MG, Q8H
     Route: 048
     Dates: start: 2023
  26. ALLOPURINOL [Concomitant]
     Active Substance: ALLOPURINOL
     Indication: Prophylaxis
     Dosage: 300 MILLIGRAM, BID
     Route: 048
     Dates: start: 20230804
  27. EZETIMIBE\ROSUVASTATIN [Concomitant]
     Active Substance: EZETIMIBE\ROSUVASTATIN
     Dosage: 10/10 MILLIGRAM, QD
     Route: 048
     Dates: start: 2023
  28. FILGRASTIM [Concomitant]
     Active Substance: FILGRASTIM
     Indication: Neutropenia
     Dosage: 300 MICROGRAM, QD
     Route: 058
     Dates: start: 20230829, end: 20230831
  29. LEVOFLOXACIN [Concomitant]
     Active Substance: LEVOFLOXACIN
     Indication: Prophylaxis
     Dosage: 500 MILLIGRAM, QD
     Route: 048
     Dates: start: 20230828, end: 20230829
  30. PIPERACILLIN AND TAZOBACTAM [Concomitant]
     Active Substance: PIPERACILLIN SODIUM\TAZOBACTAM SODIUM
     Indication: Clostridium difficile infection
     Dosage: DOSE : 4000 MG
     Route: 042
     Dates: start: 20230917, end: 20230917
  31. KONAKION [Concomitant]
     Active Substance: PHYTONADIONE
     Indication: Prophylaxis
     Dosage: 10 MILLIGRAM, SINGLE
     Route: 042
     Dates: start: 20230830, end: 20230831
  32. KONAKION [Concomitant]
     Active Substance: PHYTONADIONE
     Dosage: 10 MILLIGRAM, Q8H
     Route: 042
     Dates: start: 20230914
  33. LORAZEPAM [Concomitant]
     Active Substance: LORAZEPAM
     Indication: Prophylaxis
     Dosage: 1 MILLIGRAM, SINGLE
     Route: 048
     Dates: start: 20230827, end: 20230831
  34. GLUCONATO CALCIO [Concomitant]
     Indication: Prophylaxis
     Dosage: 10 MILLILITER, SINGLE
     Route: 042
     Dates: start: 20230830, end: 20230831
  35. SODIUM CHLORIDE [Concomitant]
     Active Substance: SODIUM CHLORIDE
     Indication: Prophylaxis
     Dosage: 500 MILLILITER, SINGLE
     Route: 042
     Dates: start: 20230815, end: 20230815
  36. CALCIUM GLUCONATE [Concomitant]
     Active Substance: CALCIUM GLUCONATE
     Indication: Hypocalcaemia
     Dosage: 20 MILLILITER, QD
     Route: 042
     Dates: start: 20230905
  37. CHLORTHALIDONE [Concomitant]
     Active Substance: CHLORTHALIDONE
     Indication: Prophylaxis
     Dosage: 25 MILLIGRAM, QD
     Route: 048
     Dates: start: 20230910
  38. AMLODIPINE BESYLATE [Concomitant]
     Active Substance: AMLODIPINE BESYLATE
     Indication: Prophylaxis
     Dosage: 10 MILLIGRAM, QD
     Route: 048
     Dates: start: 20230910
  39. ANIDULAFUNGIN [Concomitant]
     Active Substance: ANIDULAFUNGIN
     Indication: Prophylaxis
     Dosage: 100 MILLIGRAM, QD
     Route: 042
     Dates: start: 20230911
  40. FIDAXOMICIN [Concomitant]
     Active Substance: FIDAXOMICIN
     Indication: Clostridium difficile infection
     Dosage: 200 MILLIGRAM, Q12H
     Route: 048
     Dates: start: 20230912, end: 20230918
  41. FUROSEMIDE [Concomitant]
     Active Substance: FUROSEMIDE
     Indication: Prophylaxis
     Dosage: 20 MILLIGRAM, QD
     Route: 042
     Dates: start: 20230912
  42. MAGNESIUM SULFATE [Concomitant]
     Active Substance: MAGNESIUM SULFATE\MAGNESIUM SULFATE HEPTAHYDRATE
     Indication: Hypomagnesaemia
     Dosage: 1500 MILLIGRAM, QD
     Route: 042
     Dates: start: 20230912
  43. GLUCOSALINE [Concomitant]
     Indication: Prophylaxis
     Dosage: 500 MILLILITER, QD
     Route: 042
     Dates: start: 20230912
  44. ALBUMIN HUMAN [Concomitant]
     Active Substance: ALBUMIN HUMAN
     Indication: Prophylaxis
     Dosage: 20 GRAM, Q8H
     Route: 042
     Dates: start: 20230913
  45. AMIODARONE [Concomitant]
     Active Substance: AMIODARONE
     Indication: Prophylaxis
     Dosage: 900 MILLIGRAM, PRN
     Route: 042
     Dates: start: 20230915
  46. DIGOXIN [Concomitant]
     Active Substance: DIGOXIN
     Indication: Prophylaxis
     Dosage: 0.5 MILLIGRAM, QD
     Route: 042
     Dates: start: 20230914, end: 20230915
  47. DAPAGLIFLOZIN [Concomitant]
     Active Substance: DAPAGLIFLOZIN
     Indication: Prophylaxis
     Dosage: 10 MILLIGRAM, QD
     Route: 048
     Dates: start: 20230915
  48. DEXAMETHASONE [Concomitant]
     Active Substance: DEXAMETHASONE
     Indication: Diffuse large B-cell lymphoma stage II
     Dosage: 10 MILLIGRAM, QID
     Route: 042
     Dates: start: 20230917, end: 20230918
  49. INSULIN GLARGINE [Concomitant]
     Active Substance: INSULIN GLARGINE
     Indication: Prophylaxis
     Dosage: 3 MILLILITER, QD
     Route: 058
     Dates: start: 20230917
  50. SODIUM BICARBONATE [Concomitant]
     Active Substance: SODIUM BICARBONATE
     Indication: Prophylaxis
     Route: 042
     Dates: start: 20230915, end: 20230916
  51. MEROPENEM [Concomitant]
     Active Substance: MEROPENEM
     Indication: Clostridium difficile infection
     Dosage: 1000 MILLIGRAM, Q12H
     Route: 042
     Dates: start: 20230917
  52. LEVETIRACETAM [Concomitant]
     Active Substance: LEVETIRACETAM
     Indication: Prophylaxis
     Dosage: 250 MILLIGRAM, Q12H
     Route: 042
     Dates: start: 20230917
  53. LINEZOLID [Concomitant]
     Active Substance: LINEZOLID
     Indication: Clostridium difficile infection
     Dosage: 600 MILLIGRAM, Q12H
     Route: 042
     Dates: start: 20230917
  54. VANCOMYCIN [Concomitant]
     Active Substance: VANCOMYCIN
     Indication: Clostridium difficile infection
     Dosage: 500 MILLIGRAM, Q12H
     Route: 048
     Dates: start: 20230918
  55. POTASSIUM CHLORIDE [Concomitant]
     Active Substance: POTASSIUM CHLORIDE
     Indication: Prophylaxis
     Dosage: 30 MILLIEQUIVALENT, QD
     Route: 042
     Dates: start: 20230827, end: 20230828
  56. POTASSIUM CHLORIDE [Concomitant]
     Active Substance: POTASSIUM CHLORIDE
     Indication: Hypokalaemia
     Dosage: 60 MILLIEQUIVALENT, QD
     Route: 042
     Dates: start: 20230828, end: 20230831
  57. POTASSIUM CHLORIDE [Concomitant]
     Active Substance: POTASSIUM CHLORIDE
     Indication: Hypokalaemia
     Dosage: 40 MILLIEQUIVALENT, QD
     Route: 042
     Dates: start: 20230916
  58. POLARAMINE [Concomitant]
     Active Substance: DEXCHLORPHENIRAMINE MALEATE
     Indication: Prophylaxis
     Dosage: 10 MILLIGRAM, QD
     Route: 042
     Dates: start: 20230828, end: 20230828
  59. OMEPRAZOLE [Concomitant]
     Active Substance: OMEPRAZOLE
     Indication: Prophylaxis
     Dosage: 20 MILLIGRAM, SINGLE
     Route: 048
     Dates: start: 20230827, end: 20230831
  60. OMEPRAZOLE [Concomitant]
     Active Substance: OMEPRAZOLE
     Dosage: 40 MILLIGRAM, SINGLE
     Route: 042
     Dates: start: 20230904
  61. AMINO ACIDS\DEXTROSE\ELECTROLYTES NOS\SOYBEAN OIL [Concomitant]
     Active Substance: AMINO ACIDS\DEXTROSE\ELECTROLYTES NOS\SOYBEAN OIL
     Indication: Clostridium difficile infection
     Dosage: 1206 MILLILITER, QD
     Route: 042
     Dates: start: 20230913
  62. BISOPROLOL [Concomitant]
     Active Substance: BISOPROLOL\BISOPROLOL FUMARATE
     Indication: Clostridium difficile infection
     Dosage: 5 MILLIGRAM, Q12H
     Route: 048
     Dates: start: 20230916

REACTIONS (5)
  - Cytokine release syndrome [Recovered/Resolved]
  - Cytokine release syndrome [Recovered/Resolved]
  - Cytokine release syndrome [Recovered/Resolved]
  - Immune effector cell-associated neurotoxicity syndrome [Recovered/Resolved]
  - Pneumonia [Fatal]

NARRATIVE: CASE EVENT DATE: 20230815
